FAERS Safety Report 22683749 (Version 3)
Quarter: 2025Q1

REPORT INFORMATION
  Report Type: Spontaneous
  Country: US (occurrence: US)
  Receive Date: 20230708
  Receipt Date: 20250102
  Transmission Date: 20250409
  Serious: Yes (Hospitalization, Disabling, Other)
  Sender: TEVA
  Company Number: US-TEVA-2023-US-2905413

PATIENT
  Age: 49 Year
  Sex: Female
  Weight: 71 kg

DRUGS (53)
  1. MEDROXYPROGESTERONE [Suspect]
     Active Substance: MEDROXYPROGESTERONE
     Indication: Product used for unknown indication
     Dosage: DOSAGE: 150 MG/ML DOSAGE TEXT: RECEIVED INJECTIONS PERIODICALLY FOR 26 YEARS
     Route: 030
     Dates: start: 1995, end: 2021
  2. MEDROXYPROGESTERONE [Suspect]
     Active Substance: MEDROXYPROGESTERONE
     Indication: Product used for unknown indication
     Dosage: DOSAGE: 150 MG/ML
     Route: 030
     Dates: start: 20200817, end: 20210817
  3. MEDROXYPROGESTERONE [Suspect]
     Active Substance: MEDROXYPROGESTERONE
     Indication: Product used for unknown indication
     Dosage: DOSAGE: 150 MG/ML ADMINISTERED ON VENTROGLUTEAL LEFT.
     Route: 030
  4. MEDROXYPROGESTERONE [Suspect]
     Active Substance: MEDROXYPROGESTERONE
     Indication: Product used for unknown indication
     Dosage: DOSAGE: 150 MG/ML ADMINISTERED ON VENTROGLUTEAL LEFT.
     Route: 030
     Dates: start: 20200817, end: 20210817
  5. MEDROXYPROGESTERONE [Suspect]
     Active Substance: MEDROXYPROGESTERONE
     Indication: Product used for unknown indication
     Dosage: DOSAGE: 150 MG/ML ADMINISTERED ON VENTROGLUTEAL LEFT.
     Route: 030
     Dates: start: 20160407, end: 20160407
  6. MEDROXYPROGESTERONE [Suspect]
     Active Substance: MEDROXYPROGESTERONE
     Indication: Product used for unknown indication
     Dosage: DOSAGE: 150 MG/ML ADMINISTERED ON VENTROGLUTEAL LEFT.
     Route: 030
     Dates: start: 20200817, end: 20210817
  7. DEPO-PROVERA [Suspect]
     Active Substance: MEDROXYPROGESTERONE ACETATE
     Indication: Product used for unknown indication
     Route: 065
     Dates: start: 1995, end: 2021
  8. CALCIUM [Concomitant]
     Active Substance: CALCIUM
     Indication: Product used for unknown indication
  9. FOLIC ACID [Concomitant]
     Active Substance: FOLIC ACID
     Indication: Product used for unknown indication
  10. VITAMIN D3 [Concomitant]
     Active Substance: CHOLECALCIFEROL
     Indication: Product used for unknown indication
  11. LUTEIN [Concomitant]
     Active Substance: LUTEIN
     Indication: Product used for unknown indication
  12. VITAMINS [Concomitant]
     Active Substance: VITAMINS
     Indication: Product used for unknown indication
  13. Olive leaf [Concomitant]
     Indication: Product used for unknown indication
  14. PLAN B ONE-STEP [Concomitant]
     Active Substance: LEVONORGESTREL
     Indication: Contraception
     Route: 048
  15. ZOFRAN [Concomitant]
     Active Substance: ONDANSETRON HYDROCHLORIDE
     Indication: Nausea
     Route: 048
  16. VIMPAT [Concomitant]
     Active Substance: LACOSAMIDE
     Indication: Seizure prophylaxis
     Route: 048
  17. KEPPRA [Concomitant]
     Active Substance: LEVETIRACETAM
     Indication: Seizure prophylaxis
     Route: 048
  18. MELATONIN [Concomitant]
     Active Substance: MELATONIN
     Indication: Insomnia
     Route: 048
  19. AMANTADINE HYDROCHLORIDE [Concomitant]
     Active Substance: AMANTADINE HYDROCHLORIDE
     Indication: Cerebrovascular accident
     Dosage: 50MG/5ML
     Route: 048
  20. BETHANECHOL CHLORIDE [Concomitant]
     Active Substance: BETHANECHOL CHLORIDE
     Indication: Bladder spasm
     Route: 048
  21. METOPROLOL TARTRATE [Concomitant]
     Active Substance: METOPROLOL TARTRATE
     Indication: Hypertension
     Dosage: 1.5 MG TAB
     Route: 048
  22. FLOMAX [Concomitant]
     Active Substance: TAMSULOSIN HYDROCHLORIDE
     Indication: Urinary retention
     Route: 048
  23. ALBUTEROL SULFATE [Concomitant]
     Active Substance: ALBUTEROL SULFATE
     Indication: Dyspnoea
     Route: 048
  24. SALINE [Concomitant]
     Active Substance: SODIUM CHLORIDE
     Indication: Nasal dryness
  25. QUETIAPINE FUMARATE [Concomitant]
     Active Substance: QUETIAPINE FUMARATE
     Indication: Affective disorder
     Route: 048
  26. LEVOTHYROXINE [Concomitant]
     Active Substance: LEVOTHYROXINE
     Indication: Product used for unknown indication
     Route: 048
  27. HYDROCORTISONE [Concomitant]
     Active Substance: HYDROCORTISONE
     Indication: Post procedural swelling
     Dosage: GIVE 2 TABLET
     Route: 048
     Dates: end: 202407
  28. AMBIEN [Concomitant]
     Active Substance: ZOLPIDEM TARTRATE
     Indication: Insomnia
     Route: 048
  29. ZYRTEC [Concomitant]
     Active Substance: CETIRIZINE HYDROCHLORIDE
     Indication: Hypersensitivity
     Route: 048
     Dates: start: 20210808
  30. SENNA [Concomitant]
     Active Substance: SENNOSIDES
     Indication: Constipation
     Route: 048
  31. PROBIOTICS NOS [Concomitant]
     Active Substance: PROBIOTICS NOS
     Indication: Product used for unknown indication
  32. SALINE [Concomitant]
     Active Substance: SODIUM CHLORIDE
     Indication: Product used for unknown indication
  33. MUPIROCIN [Concomitant]
     Active Substance: MUPIROCIN
     Indication: Product used for unknown indication
  34. ADACEL TDAP [Concomitant]
     Active Substance: TETANUS TOXOID, REDUCED DIPHTHERIA TOXOID AND ACELLULAR PERTUSSIS VACCINE ADSORBED, TDAP
     Indication: Product used for unknown indication
     Dates: start: 20210603
  35. INFLUENZA VIRUS VACCINE [Concomitant]
     Active Substance: INFLUENZA VIRUS VACCINE
     Indication: Product used for unknown indication
     Dates: start: 20120926
  36. INFLUENZA VIRUS VACCINE [Concomitant]
     Active Substance: INFLUENZA VIRUS VACCINE
     Indication: Product used for unknown indication
     Dates: start: 20161112
  37. INFLUENZA VIRUS VACCINE [Concomitant]
     Active Substance: INFLUENZA VIRUS VACCINE
     Indication: Product used for unknown indication
     Dates: start: 20171029
  38. INFLUENZA VIRUS VACCINE [Concomitant]
     Active Substance: INFLUENZA VIRUS VACCINE
     Indication: Product used for unknown indication
     Dates: start: 20181027
  39. INFLUENZA VIRUS VACCINE [Concomitant]
     Active Substance: INFLUENZA VIRUS VACCINE
     Indication: Product used for unknown indication
     Dates: start: 20190925
  40. INFLUENZA VIRUS VACCINE [Concomitant]
     Active Substance: INFLUENZA VIRUS VACCINE
     Indication: Product used for unknown indication
     Dates: start: 20201029
  41. PNEUMOCOCCAL VACCINE POLYVALENT [Concomitant]
     Active Substance: PNEUMOCOCCAL VACCINE POLYVALENT
     Indication: Product used for unknown indication
     Dates: start: 20210221
  42. MODERNA COVID-19 VACCINE [Concomitant]
     Active Substance: ELASOMERAN
     Indication: Product used for unknown indication
     Dates: start: 20210726
  43. MODERNA COVID-19 VACCINE [Concomitant]
     Active Substance: ELASOMERAN
     Indication: Product used for unknown indication
     Dates: start: 20210823
  44. MODERNA COVID-19 VACCINE [Concomitant]
     Active Substance: ELASOMERAN
     Indication: Product used for unknown indication
     Dates: start: 20220130
  45. SHINGRIX [Concomitant]
     Active Substance: RECOMBINANT VARICELLA ZOSTER VIRUS (VZV) GLYCOPROTEIN E
     Indication: Product used for unknown indication
     Dates: start: 20220427
  46. SHINGRIX [Concomitant]
     Active Substance: RECOMBINANT VARICELLA ZOSTER VIRUS (VZV) GLYCOPROTEIN E
     Indication: Product used for unknown indication
     Dates: start: 20221018
  47. CLOBETASOL PROPIONATE [Concomitant]
     Active Substance: CLOBETASOL PROPIONATE
     Indication: Product used for unknown indication
     Dosage: 0.05%?APPLY 2-3 DROPS TO SCALP
     Dates: start: 20220126
  48. MEDROL [Concomitant]
     Active Substance: METHYLPREDNISOLONE
     Indication: Product used for unknown indication
     Dates: start: 20220316
  49. BETAMETHASONE [Concomitant]
     Active Substance: BETAMETHASONE
     Indication: Product used for unknown indication
     Dates: start: 20221130
  50. FERROUS SULFATE [Concomitant]
     Active Substance: FERROUS SULFATE
     Indication: Product used for unknown indication
     Route: 048
  51. CARBIDOPA\LEVODOPA [Concomitant]
     Active Substance: CARBIDOPA\LEVODOPA
     Indication: Restless legs syndrome
     Route: 048
  52. LASIX [Concomitant]
     Active Substance: FUROSEMIDE
     Indication: Oedema peripheral
     Dates: start: 2024
  53. FLOVENT DISKUS [Concomitant]
     Active Substance: FLUTICASONE PROPIONATE
     Indication: Product used for unknown indication
     Dosage: 100 MCG/ACTUATION
     Route: 055
     Dates: start: 20220628

REACTIONS (12)
  - Blindness unilateral [Not Recovered/Not Resolved]
  - Visual field defect [Not Recovered/Not Resolved]
  - Visual acuity reduced [Not Recovered/Not Resolved]
  - Pupillary reflex impaired [Not Recovered/Not Resolved]
  - Meningioma [Unknown]
  - Nervous system disorder [Unknown]
  - Osteoporosis [Unknown]
  - Osteopenia [Unknown]
  - Rib fracture [Unknown]
  - Visual impairment [Not Recovered/Not Resolved]
  - Hydrocephalus [Unknown]
  - Fall [Unknown]

NARRATIVE: CASE EVENT DATE: 20210101
